FAERS Safety Report 5841020-X (Version None)
Quarter: 2008Q3

REPORT INFORMATION
  Report Type: 
  Country: None (occurrence: None)
  Receive Date: 20080811
  Receipt Date: 20080711
  Transmission Date: 20090109
  Serious: Yes (Other)
  Sender: FDA-Public Use
  Company Number: US-MERCK-0807USA02969B1

PATIENT
  Sex: Male

DRUGS (7)
  1. SINGULAIR [Suspect]
     Route: 064
     Dates: start: 20000101, end: 20040101
  2. SINGULAIR [Suspect]
     Route: 064
     Dates: start: 20040616
  3. ALBUTEROL [Concomitant]
     Route: 064
  4. ATROVENT [Concomitant]
     Route: 064
  5. PULMICORT-100 [Concomitant]
     Route: 064
  6. SEREVENT [Concomitant]
     Route: 064
  7. VITAMINS (UNSPECIFIED) [Concomitant]
     Route: 064

REACTIONS (4)
  - BRADYCARDIA FOETAL [None]
  - FOETAL HEART RATE DECREASED [None]
  - NASOPHARYNGITIS [None]
  - UMBILICAL CORD AROUND NECK [None]
